FAERS Safety Report 16729720 (Version 3)
Quarter: 2019Q3

REPORT INFORMATION
  Report Type: Spontaneous
  Country: US (occurrence: US)
  Receive Date: 20190822
  Receipt Date: 20190926
  Transmission Date: 20191005
  Serious: Yes (Other)
  Sender: FDA-Public Use
  Company Number: US-IGSA-SR10008952

PATIENT
  Age: 73 Year
  Sex: Female
  Weight: 84.6 kg

DRUGS (27)
  1. CALCIUM ANTACID [Concomitant]
     Active Substance: CALCIUM CARBONATE
  2. ATORVASTATIN CALCIUM. [Concomitant]
     Active Substance: ATORVASTATIN CALCIUM
  3. DULOXETINE                         /01749302/ [Concomitant]
     Active Substance: DULOXETINE
  4. VITAMIN D                          /00107901/ [Concomitant]
     Active Substance: ERGOCALCIFEROL
  5. HEPARIN LOCK FLUSH [Concomitant]
     Active Substance: HEPARIN SODIUM
  6. PREDNISONE                         /00044702/ [Concomitant]
     Active Substance: PREDNISONE
  7. IMODIUM A-D [Concomitant]
     Active Substance: LOPERAMIDE HYDROCHLORIDE
  8. ONDANSETRON                        /00955302/ [Concomitant]
     Active Substance: ONDANSETRON HYDROCHLORIDE
  9. GAMUNEX-C [Suspect]
     Active Substance: HUMAN IMMUNOGLOBULIN G
     Dosage: 45 G, UNK
     Route: 042
  10. BUPROPION                          /00700502/ [Concomitant]
     Active Substance: BUPROPION HYDROCHLORIDE
  11. GAMMAGARD [Concomitant]
     Active Substance: HUMAN IMMUNOGLOBULIN G
  12. GAMUNEX-C [Suspect]
     Active Substance: HUMAN IMMUNOGLOBULIN G
     Dosage: 45 G, UNK
     Dates: start: 20190720, end: 20190720
  13. CLARITIN [Concomitant]
     Active Substance: LORATADINE
     Indication: PREMEDICATION
  14. ASPIRIN 81 [Concomitant]
     Active Substance: ASPIRIN
  15. SODIUM CHLORIDE. [Concomitant]
     Active Substance: SODIUM CHLORIDE
  16. EPINEPHRINE                        /00003902/ [Concomitant]
     Active Substance: EPINEPHRINE HYDROCHLORIDE
  17. RANITIDINE                         /00550802/ [Concomitant]
     Active Substance: RANITIDINE
  18. ACETAMINOPHEN. [Concomitant]
     Active Substance: ACETAMINOPHEN
  19. NORMAL SALINE [Concomitant]
     Active Substance: SODIUM CHLORIDE
  20. IMURAN [Concomitant]
     Active Substance: AZATHIOPRINE
  21. GAMUNEX-C [Suspect]
     Active Substance: HUMAN IMMUNOGLOBULIN G
     Dosage: UNK
  22. LISINOPRIL                         /00894002/ [Concomitant]
     Active Substance: LISINOPRIL
  23. METFORMIN [Concomitant]
     Active Substance: METFORMIN HYDROCHLORIDE
  24. DIPHENHYDRAMINE                    /00000402/ [Concomitant]
     Active Substance: DIPHENHYDRAMINE
  25. GAMUNEX-C [Suspect]
     Active Substance: HUMAN IMMUNOGLOBULIN G
     Indication: MYASTHENIA GRAVIS
     Dosage: 45 G, UNK
     Dates: start: 20190719, end: 20190719
  26. DEXAMETHASONE                      /00016002/ [Concomitant]
     Active Substance: DEXAMETHASONE SODIUM PHOSPHATE
     Indication: PREMEDICATION
     Dosage: 2 MG, UNK
     Route: 042
  27. MESTINON [Concomitant]
     Active Substance: PYRIDOSTIGMINE BROMIDE

REACTIONS (3)
  - Pruritus [Recovering/Resolving]
  - Rash [Unknown]
  - Headache [Unknown]

NARRATIVE: CASE EVENT DATE: 201905
